FAERS Safety Report 7398005-4 (Version None)
Quarter: 2011Q2

REPORT INFORMATION
  Report Type: 
  Country: None (occurrence: None)
  Receive Date: 20110406
  Receipt Date: 20110401
  Transmission Date: 20111010
  Serious: Yes (Hospitalization, Disabling, Other)
  Sender: FDA-Public Use
  Company Number: US-PFIZER INC-2004119707

PATIENT
  Age: 76 Year
  Sex: Female

DRUGS (2)
  1. LIPITOR [Suspect]
     Indication: BLOOD CHOLESTEROL ABNORMAL
     Route: 065
  2. LIPITOR [Suspect]
     Indication: BLOOD TRIGLYCERIDES ABNORMAL

REACTIONS (21)
  - ARTHROPATHY [None]
  - NEUROPATHY PERIPHERAL [None]
  - DYSSTASIA [None]
  - PAIN IN EXTREMITY [None]
  - MUSCULOSKELETAL DISCOMFORT [None]
  - ASTHENIA [None]
  - NERVOUSNESS [None]
  - MUSCLE SPASMS [None]
  - MUSCULOSKELETAL STIFFNESS [None]
  - RHEUMATOID ARTHRITIS [None]
  - MOBILITY DECREASED [None]
  - TREMOR [None]
  - OEDEMA PERIPHERAL [None]
  - ROTATOR CUFF SYNDROME [None]
  - LIMB INJURY [None]
  - TENDONITIS [None]
  - TYPE 2 DIABETES MELLITUS [None]
  - CRYING [None]
  - NERVE INJURY [None]
  - PAIN [None]
  - DYSGRAPHIA [None]
